FAERS Safety Report 6988126-X (Version None)
Quarter: 2010Q3

REPORT INFORMATION
  Report Type: 
  Country: None (occurrence: None)
  Receive Date: 20100916
  Receipt Date: 20100906
  Transmission Date: 20110219
  Serious: Yes (Other)
  Sender: FDA-Public Use
  Company Number: B0674461A

PATIENT
  Sex: Male

DRUGS (6)
  1. SPEKTRAMOX [Suspect]
     Indication: BRONCHITIS
     Route: 065
     Dates: start: 20100730, end: 20100806
  2. AMOXICILLIN/CLAVULANATE POTASSIUM [Suspect]
     Indication: BRONCHITIS
     Route: 065
     Dates: start: 20100701, end: 20100701
  3. BETNOVAT [Concomitant]
     Route: 065
  4. TERBUTALINE SULFATE [Concomitant]
     Route: 065
  5. TERBUTALINE SULFATE [Concomitant]
     Route: 065
  6. PULMICORT [Concomitant]
     Route: 065

REACTIONS (3)
  - BLOOD BILIRUBIN INCREASED [None]
  - GAMMA-GLUTAMYLTRANSFERASE INCREASED [None]
  - TRANSAMINASES INCREASED [None]
